FAERS Safety Report 4627918-9 (Version None)
Quarter: 2005Q2

REPORT INFORMATION
  Report Type: 
  Country: None (occurrence: None)
  Receive Date: 20050406
  Receipt Date: 20050328
  Transmission Date: 20051028
  Serious: Yes (Hospitalization, Other)
  Sender: FDA-Public Use
  Company Number: US-NOVOPROD-243175

PATIENT
  Age: 50 Year
  Sex: Female
  Weight: 82 kg

DRUGS (3)
  1. ACTIVELLA [Suspect]
     Indication: MENOPAUSAL SYMPTOMS
     Dosage: 1 TAB, QD
     Route: 048
     Dates: start: 20010101, end: 20050302
  2. BUSPAR [Concomitant]
     Indication: ANXIETY
     Dates: start: 20000101, end: 20050302
  3. ZOLOFT [Concomitant]
     Indication: DEPRESSION
     Dates: start: 20000101, end: 20050302

REACTIONS (2)
  - OEDEMA PERIPHERAL [None]
  - PAIN [None]
